FAERS Safety Report 24035787 (Version 5)
Quarter: 2025Q2

REPORT INFORMATION
  Report Type: Spontaneous
  Country: DE (occurrence: DE)
  Receive Date: 20240701
  Receipt Date: 20250428
  Transmission Date: 20250717
  Serious: Yes (Death, Other)
  Sender: LABORATOIRES SERB
  Company Number: DE-SERB S.A.S.-2158724

PATIENT
  Age: 40 Year
  Sex: Male

DRUGS (3)
  1. CYANOKIT [Suspect]
     Active Substance: HYDROXOCOBALAMIN
     Indication: Blood cyanide increased
     Dates: start: 20240115, end: 20240115
  2. CYANOKIT [Suspect]
     Active Substance: HYDROXOCOBALAMIN
     Indication: Injury
  3. NexoBrid UNK (pineapple stem?bromelains) [Concomitant]
     Dates: start: 20240115, end: 20240115

REACTIONS (7)
  - Atrial fibrillation [Fatal]
  - Inappropriate schedule of product administration [Unknown]
  - Ventricular tachycardia [Fatal]
  - Atrioventricular block [Fatal]
  - Pulseless electrical activity [Fatal]
  - Lactic acidosis [Fatal]
  - Cardiac arrest [Fatal]

NARRATIVE: CASE EVENT DATE: 20240116
